FAERS Safety Report 9068386 (Version 1)
Quarter: 2013Q1

REPORT INFORMATION
  Report Type: Spontaneous
  Country: US (occurrence: None)
  Receive Date: 20130212
  Receipt Date: 20130212
  Transmission Date: 20140127
  Serious: Yes (Other)
  Sender: FDA-Public Use
  Company Number: None

PATIENT
  Age: 57 Year
  Sex: Female
  Weight: 98.43 kg

DRUGS (1)
  1. WELCHOL [Suspect]
     Indication: BLOOD CHOLESTEROL INCREASED
     Dosage: 1 PILL  PO
     Route: 048
     Dates: start: 20130209, end: 20130210

REACTIONS (2)
  - Vertigo [None]
  - Nausea [None]
